FAERS Safety Report 17404327 (Version 2)
Quarter: 2020Q1

REPORT INFORMATION
  Report Type: Report from Study
  Country: US (occurrence: US)
  Receive Date: 20200211
  Receipt Date: 20200213
  Transmission Date: 20200409
  Serious: Yes (Hospitalization)
  Sender: FDA-Public Use
  Company Number: US-EISAI MEDICAL RESEARCH-EC-2019-067358

PATIENT
  Age: 67 Year
  Sex: Female

DRUGS (2)
  1. LENVIMA [Suspect]
     Active Substance: LENVATINIB
     Route: 048
     Dates: start: 20200122
  2. LENVIMA [Suspect]
     Active Substance: LENVATINIB
     Indication: HEPATOCELLULAR CARCINOMA
     Route: 048
     Dates: start: 20191124, end: 20200108

REACTIONS (12)
  - Visual impairment [Not Recovered/Not Resolved]
  - Taste disorder [Recovering/Resolving]
  - Weight decreased [Not Recovered/Not Resolved]
  - Constipation [Recovering/Resolving]
  - Hypertension [Not Recovered/Not Resolved]
  - Stomatitis [Recovered/Resolved]
  - Vomiting [Not Recovered/Not Resolved]
  - Platelet count decreased [Not Recovered/Not Resolved]
  - Dehydration [Unknown]
  - Decreased appetite [Recovering/Resolving]
  - Fatigue [Not Recovered/Not Resolved]
  - Dry skin [Not Recovered/Not Resolved]

NARRATIVE: CASE EVENT DATE: 201912
